FAERS Safety Report 23767179 (Version 1)
Quarter: 2024Q2

REPORT INFORMATION
  Report Type: Spontaneous
  Country: GB (occurrence: GB)
  Receive Date: 20240422
  Receipt Date: 20240422
  Transmission Date: 20240715
  Serious: Yes (Other)
  Sender: FDA-Public Use
  Company Number: None

PATIENT
  Age: 73 Year
  Sex: Female
  Weight: 67 kg

DRUGS (5)
  1. AMOXICILLIN [Suspect]
     Active Substance: AMOXICILLIN
     Indication: Product used for unknown indication
     Dates: start: 20240320, end: 20240325
  2. ADCAL [Concomitant]
     Indication: Product used for unknown indication
     Dates: start: 20230612
  3. CLARITHROMYCIN [Concomitant]
     Active Substance: CLARITHROMYCIN
     Indication: Product used for unknown indication
     Dosage: TAKE ONE EVERY 12 HRS FOR ONE WEEK UNTIL COMPLETED
     Dates: start: 20240321, end: 20240328
  4. MEBEVERINE HYDROCHLORIDE [Concomitant]
     Active Substance: MEBEVERINE HYDROCHLORIDE
     Indication: Product used for unknown indication
     Dosage: 20 MINUTES BEFORE FOOD
     Dates: start: 20220504
  5. RIZATRIPTAN [Concomitant]
     Active Substance: RIZATRIPTAN
     Indication: Migraine
     Dosage: TAKE ONE AS DIRECTED AT ONSET OF MIGRAINE, CAN ...
     Dates: start: 20240320

REACTIONS (2)
  - Malaise [Recovered/Resolved]
  - Drug intolerance [Unknown]

NARRATIVE: CASE EVENT DATE: 20240320
